FAERS Safety Report 14979093 (Version 1)
Quarter: 2018Q2

REPORT INFORMATION
  Report Type: Spontaneous
  Country: US (occurrence: US)
  Receive Date: 20180606
  Receipt Date: 20180606
  Transmission Date: 20180711
  Serious: Yes (Other)
  Sender: FDA-Public Use
  Company Number: US-JNJFOC-20180601089

PATIENT

DRUGS (4)
  1. VINBLASTINE [Suspect]
     Active Substance: VINBLASTINE
     Indication: HODGKIN^S DISEASE
     Dosage: DOSE: 6 (UNITS UNSPECIFIED) ON DAY 1 AND 15, CUMULATIVE DOSE FOR 4 CYCLES: 48, FOR 6 CYCLES: 72
     Route: 042
  2. DACARBAZINE. [Suspect]
     Active Substance: DACARBAZINE
     Indication: HODGKIN^S DISEASE
     Dosage: DOSE: 275 (UNITS UNSPECIFIED)ON DAY 1 AND 15, CUMULATIVE DOSE FOR 4 CYCLES: 2200, FOR 6 CYCLES: 3300
     Route: 042
  3. DOXORUBICIN HYDROCHLORIDE. [Suspect]
     Active Substance: DOXORUBICIN HYDROCHLORIDE
     Indication: HODGKIN^S DISEASE
     Dosage: ON DAY 1 AND 15, CUMULATIVE DOSE FOR 4 CYCLES: 200 MG/M2, FOR 6 CYCLES: 300 MG/M2
     Route: 042
  4. BLEOMYCIN [Suspect]
     Active Substance: BLEOMYCIN SULFATE
     Indication: HODGKIN^S DISEASE
     Dosage: 10 UNITS/ M2 ON DAY 1, 15,  CUMULATIVE DOSE FOR 4 CYCLES: 80 UNITS/M2, FOR 6 CYCLES: 120 UNITS/M2
     Route: 042

REACTIONS (7)
  - Vomiting [Unknown]
  - Neutropenia [Unknown]
  - Pyrexia [Unknown]
  - Product use in unapproved indication [Unknown]
  - Appendicitis [Unknown]
  - Hyponatraemia [Unknown]
  - Off label use [Unknown]
